FAERS Safety Report 8790483 (Version 1)
Quarter: 2012Q4

REPORT INFORMATION
  Report Type: Spontaneous
  Country: US (occurrence: None)
  Receive Date: 20120911
  Receipt Date: 20120911
  Transmission Date: 20130627
  Serious: Yes (Life-Threatening, Other)
  Sender: FDA-Public Use
  Company Number: None

PATIENT
  Sex: Female
  Weight: 68.04 kg

DRUGS (1)
  1. TRI-PREVIFEM [Suspect]
     Indication: CONTRACEPTION
     Route: 048
     Dates: start: 20120812, end: 20120908

REACTIONS (5)
  - Mental impairment [None]
  - Depression [None]
  - Suicidal ideation [None]
  - Product substitution issue [None]
  - Nervous system disorder [None]
